FAERS Safety Report 5220991-9 (Version None)
Quarter: 2007Q1

REPORT INFORMATION
  Report Type: 
  Country: None (occurrence: None)
  Receive Date: 20070126
  Receipt Date: 20070112
  Transmission Date: 20070707
  Serious: Yes (Disabling)
  Sender: FDA-Public Use
  Company Number: 2006GB02091

PATIENT
  Age: 20401 Day
  Sex: Female
  Weight: 82.7 kg

DRUGS (7)
  1. ARIMIDEX [Suspect]
     Route: 048
     Dates: start: 20020601, end: 20060823
  2. SERETIDE INHALER [Concomitant]
  3. METFORMIN HCL [Concomitant]
  4. RAMIPRIL [Concomitant]
  5. CALCICHEW D3 FORTE [Concomitant]
  6. RABEPRAZOLE SODIUM [Concomitant]
  7. ZIMOVANE [Concomitant]

REACTIONS (9)
  - ARTHRALGIA [None]
  - CHRONIC FATIGUE SYNDROME [None]
  - DYSPNOEA [None]
  - FATIGUE [None]
  - INSOMNIA [None]
  - MALAISE [None]
  - MYALGIA [None]
  - NAUSEA [None]
  - STRESS [None]
